FAERS Safety Report 24944482 (Version 3)
Quarter: 2025Q2

REPORT INFORMATION
  Report Type: Spontaneous
  Country: US (occurrence: US)
  Receive Date: 20250208
  Receipt Date: 20250521
  Transmission Date: 20250716
  Serious: No
  Sender: VIIV
  Company Number: US-VIIV HEALTHCARE-US2025012945

PATIENT
  Age: 64 Year
  Sex: Male

DRUGS (4)
  1. DOVATO [Suspect]
     Active Substance: DOLUTEGRAVIR SODIUM\LAMIVUDINE
     Indication: HIV infection
     Dosage: UNK UNK, QD, 50-300MG
     Route: 048
     Dates: start: 201701
  2. VYVANSE [Concomitant]
     Active Substance: LISDEXAMFETAMINE DIMESYLATE
     Indication: Attention deficit hyperactivity disorder
  3. ADDERALL [Concomitant]
     Active Substance: AMPHETAMINE ASPARTATE\AMPHETAMINE SULFATE\DEXTROAMPHETAMINE SACCHARATE\DEXTROAMPHETAMINE SULFATE
     Indication: Attention deficit hyperactivity disorder
  4. TESTOSTERONE [Concomitant]
     Active Substance: TESTOSTERONE
     Indication: Hormone therapy

REACTIONS (6)
  - Rash [Not Recovered/Not Resolved]
  - Vomiting [Unknown]
  - Diarrhoea [Recovered/Resolved]
  - Food poisoning [Unknown]
  - Gastroenteritis [Unknown]
  - Immune system disorder [Unknown]

NARRATIVE: CASE EVENT DATE: 20250509
